FAERS Safety Report 6802032-2 (Version None)
Quarter: 2010Q2

REPORT INFORMATION
  Report Type: 
  Country: None (occurrence: None)
  Receive Date: 20100629
  Receipt Date: 20071024
  Transmission Date: 20101027
  Serious: Yes (Other)
  Sender: FDA-Public Use
  Company Number: US-PFIZER INC-2007066080

PATIENT
  Sex: Female
  Weight: 84 kg

DRUGS (2)
  1. SPIRONOLACTONE [Suspect]
     Indication: BLOOD PRESSURE
     Route: 048
     Dates: start: 20030101
  2. GLIMEPIRIDE [Concomitant]

REACTIONS (2)
  - INSOMNIA [None]
  - RASH [None]
